FAERS Safety Report 20565913 (Version 3)
Quarter: 2022Q3

REPORT INFORMATION
  Report Type: Spontaneous
  Country: US (occurrence: US)
  Receive Date: 20220308
  Receipt Date: 20220806
  Transmission Date: 20221027
  Serious: No
  Sender: FDA-Public Use
  Company Number: US-SA-SAC20220303000274

PATIENT
  Age: 62 Year
  Sex: Male

DRUGS (39)
  1. KEVZARA [Suspect]
     Active Substance: SARILUMAB
     Indication: Pain in extremity
     Dosage: 200 MG, QOW
     Route: 058
  2. FOLIC ACID [Suspect]
     Active Substance: FOLIC ACID
     Dosage: 50MG
  3. METHOTREXATE [Suspect]
     Active Substance: METHOTREXATE
     Dosage: 5MG
  4. OMEPRAZOLE [Suspect]
     Active Substance: OMEPRAZOLE
     Dosage: 5MG
  5. PREDNISONE [Suspect]
     Active Substance: PREDNISONE
     Dosage: 5MG
  6. BENZALKONIUM CL\BENZOCAINE\BORIC ACID\ERGOCALCIFEROL\NEOMYCIN\VITAMIN [Suspect]
     Active Substance: BENZALKONIUM CL\BENZOCAINE\BORIC ACID\ERGOCALCIFEROL\NEOMYCIN\VITAMIN A\ZINC OXIDE
     Dosage: 40MG
  7. METOPROLOL\RAMIPRIL [Suspect]
     Active Substance: METOPROLOL\RAMIPRIL
     Dosage: 100 MG
  8. FENOFIBRATE [Suspect]
     Active Substance: FENOFIBRATE
     Dosage: 100 MG
  9. SIMVASTATIN [Suspect]
     Active Substance: SIMVASTATIN
  10. NOVOLOG [Suspect]
     Active Substance: INSULIN ASPART
     Dosage: 10MG
  11. SODIUM BICARBONATE\TARTARIC ACID [Suspect]
     Active Substance: SODIUM BICARBONATE\TARTARIC ACID
     Dosage: 10 MG
  12. BUPROPION [Suspect]
     Active Substance: BUPROPION
     Dosage: 0MG
  13. NUVIGIL [Suspect]
     Active Substance: ARMODAFINIL
     Dosage: 10 MG
  14. CLARITIN-D NOS [Suspect]
     Active Substance: LORATADINE\PSEUDOEPHEDRINE SULFATE
     Dosage: 65 MG
  15. LEVSIN [Suspect]
     Active Substance: HYOSCYAMINE SULFATE
     Dosage: 15 MG
  16. BUSPIRONE [Suspect]
     Active Substance: BUSPIRONE HYDROCHLORIDE
     Dosage: 15 MG
  17. CREON [Suspect]
     Active Substance: PANCRELIPASE AMYLASE\PANCRELIPASE LIPASE\PANCRELIPASE PROTEASE
     Dosage: 160 MG
  18. CLARITIN [Concomitant]
     Active Substance: LORATADINE
     Dosage: UNK
  19. IRON [Concomitant]
     Active Substance: IRON
     Dosage: UNK
  20. LEVSIN [Concomitant]
     Active Substance: HYOSCYAMINE SULFATE
     Dosage: UNK
  21. BUSPIRONE HCL [Concomitant]
     Active Substance: BUSPIRONE HYDROCHLORIDE
     Dosage: UNK
  22. CARAFATE [Concomitant]
     Active Substance: SUCRALFATE
     Dosage: UNK
  23. CREON [Concomitant]
     Active Substance: PANCRELIPASE AMYLASE\PANCRELIPASE LIPASE\PANCRELIPASE PROTEASE
     Dosage: UNK
  24. FENOFIBRATE [Concomitant]
     Active Substance: FENOFIBRATE
     Dosage: UNK
  25. LANTUS [Concomitant]
     Active Substance: INSULIN GLARGINE
     Dosage: UNK
  26. SOL [Concomitant]
     Dosage: 100MG
  27. METOPROLOL [Concomitant]
     Active Substance: METOPROLOL
     Dosage: UNK
  28. NOVOLOG [Concomitant]
     Active Substance: INSULIN ASPART
     Dosage: UNK
  29. METHOTREXATE [Concomitant]
     Active Substance: METHOTREXATE
     Dosage: UNK
  30. OMEPRAZOLE [Concomitant]
     Active Substance: OMEPRAZOLE
     Dosage: UNK
  31. PREDNISONE [Concomitant]
     Active Substance: PREDNISONE
     Dosage: UNK
  32. VITAMIN D2 [Concomitant]
     Active Substance: ERGOCALCIFEROL
     Dosage: UNK
  33. DICLOFENAC [Concomitant]
     Active Substance: DICLOFENAC
     Dosage: UNK
  34. VITAMINS NOS [Concomitant]
     Active Substance: VITAMINS
  35. NUVIGIL [Concomitant]
     Active Substance: ARMODAFINIL
  36. SIMVASTATIN [Concomitant]
     Active Substance: SIMVASTATIN
  37. LEVOTHYROXINE [Concomitant]
     Active Substance: LEVOTHYROXINE
  38. BUPROPION HYDROCHLORIDE [Concomitant]
     Active Substance: BUPROPION HYDROCHLORIDE
  39. FOLIC ACID [Concomitant]
     Active Substance: FOLIC ACID

REACTIONS (8)
  - Fatigue [Unknown]
  - Joint stiffness [Unknown]
  - Anaemia [Unknown]
  - Arthralgia [Unknown]
  - Peripheral swelling [Not Recovered/Not Resolved]
  - Pain in extremity [Not Recovered/Not Resolved]
  - Pain [Not Recovered/Not Resolved]
  - Product use in unapproved indication [Unknown]
